FAERS Safety Report 4933646-2 (Version None)
Quarter: 2006Q1

REPORT INFORMATION
  Report Type: 
  Country: None (occurrence: None)
  Receive Date: 20060306
  Receipt Date: 20060116
  Transmission Date: 20060701
  Serious: Yes (Hospitalization)
  Sender: FDA-Public Use
  Company Number: US-ROCHE-432378

PATIENT
  Age: 54 Year
  Sex: Female
  Weight: 49.9 kg

DRUGS (2)
  1. PEGASYS [Suspect]
     Indication: HEPATITIS C
     Dosage: ADMINISTERED WEEKLY.
     Route: 058
     Dates: start: 20050615, end: 20051201
  2. COPEGUS [Suspect]
     Indication: HEPATITIS C
     Dosage: ADMINISTERED DAILY.
     Route: 048
     Dates: start: 20050615, end: 20051201

REACTIONS (4)
  - AGEUSIA [None]
  - BALANCE DISORDER [None]
  - HYPOTHYROIDISM [None]
  - PARAESTHESIA [None]
